FAERS Safety Report 22924492 (Version 2)
Quarter: 2024Q3

REPORT INFORMATION
  Report Type: Spontaneous
  Country: GB (occurrence: GB)
  Receive Date: 20230908
  Receipt Date: 20240710
  Transmission Date: 20241017
  Serious: Yes (Life-Threatening)
  Sender: RANBAXY
  Company Number: GB-SUN PHARMACEUTICAL INDUSTRIES LTD-2023RR-407122

PATIENT
  Age: 67 Year
  Sex: Female

DRUGS (1)
  1. DONEPEZIL [Suspect]
     Active Substance: DONEPEZIL\DONEPEZIL HYDROCHLORIDE
     Indication: Product used for unknown indication
     Dosage: UNK
     Route: 065

REACTIONS (1)
  - Seizure [Recovered/Resolved with Sequelae]
